FAERS Safety Report 25613367 (Version 1)
Quarter: 2025Q3

REPORT INFORMATION
  Report Type: Spontaneous
  Country: US (occurrence: None)
  Receive Date: 20250727
  Receipt Date: 20250727
  Transmission Date: 20251020
  Serious: Yes (Other)
  Sender: FDA-CTU
  Company Number: None

PATIENT
  Age: 59 Year
  Sex: Female
  Weight: 114.75 kg

DRUGS (16)
  1. METHYLPREDNISOLONE [Suspect]
     Active Substance: METHYLPREDNISOLONE
     Indication: Endodontic procedure
     Route: 048
     Dates: start: 20250711, end: 20250712
  2. OMEPRAZOLE [Concomitant]
     Active Substance: OMEPRAZOLE
  3. LEVOTHYROXINE [Concomitant]
     Active Substance: LEVOTHYROXINE
  4. PHENTERMINE [Concomitant]
     Active Substance: PHENTERMINE
  5. NAPROXEN [Concomitant]
     Active Substance: NAPROXEN
  6. IBUPROFEN [Concomitant]
     Active Substance: IBUPROFEN
  7. MULTI-VITAMIN [Concomitant]
     Active Substance: .ALPHA.-TOCOPHEROL ACETATE, DL-\ASCORBIC ACID\CYANOCOBALAMIN\FLUORIDE ION\FOLIC ACID\NIACIN\PYRIDOXI
  8. powdered collagen [Concomitant]
  9. PROBIOTICS NOS [Concomitant]
     Active Substance: PROBIOTICS NOS
  10. BIOTIN [Concomitant]
     Active Substance: BIOTIN
  11. OMEGA 3 [Concomitant]
     Active Substance: CAPSAICIN
  12. Schiff Bone Health [Concomitant]
  13. VITAMIN D [Concomitant]
     Active Substance: VITAMIN D NOS
  14. VITAMIN B-COMPLEX [Concomitant]
     Active Substance: DEXPANTHENOL\NIACINAMIDE\PYRIDOXINE HYDROCHLORIDE\RIBOFLAVIN 5^-PHOSPHATE SODIUM\THIAMINE HYDROCHLOR
  15. LUTEIN [Concomitant]
     Active Substance: LUTEIN
  16. CALCIUM [Concomitant]
     Active Substance: CALCIUM

REACTIONS (11)
  - Somnolence [None]
  - Asthenia [None]
  - Bone pain [None]
  - Arthralgia [None]
  - Pyrexia [None]
  - Headache [None]
  - Heart rate increased [None]
  - Dizziness [None]
  - Fatigue [None]
  - Insomnia [None]
  - Therapy cessation [None]

NARRATIVE: CASE EVENT DATE: 20250711
